FAERS Safety Report 7544161-4 (Version None)
Quarter: 2011Q2

REPORT INFORMATION
  Report Type: 
  Country: None (occurrence: None)
  Receive Date: 20110613
  Receipt Date: 20070525
  Transmission Date: 20111010
  Serious: Yes (Hospitalization, Other)
  Sender: FDA-Public Use
  Company Number: PHMT2007CA01228

PATIENT
  Sex: Male

DRUGS (1)
  1. SANDOSTATIN LAR [Suspect]
     Indication: CARCINOID TUMOUR
     Dosage: 60MG EVERY 4 WEEKS
     Route: 030
     Dates: start: 20020702

REACTIONS (4)
  - NEOPLASM MALIGNANT [None]
  - TREMOR [None]
  - ESCHERICHIA BACTERAEMIA [None]
  - DYSPNOEA [None]
